FAERS Safety Report 7580490-6 (Version None)
Quarter: 2011Q2

REPORT INFORMATION
  Report Type: 
  Country: None (occurrence: None)
  Receive Date: 20110629
  Receipt Date: 20110608
  Transmission Date: 20111010
  Serious: Yes (Hospitalization, Congenital Anomaly)
  Sender: FDA-Public Use
  Company Number: A0930113A

PATIENT
  Sex: Female

DRUGS (6)
  1. PAXIL [Suspect]
     Route: 064
     Dates: start: 20010118, end: 20030901
  2. PAROXETINE HCL [Suspect]
     Route: 064
     Dates: start: 20031014, end: 20100301
  3. HEPARIN [Concomitant]
     Indication: PULMONARY EMBOLISM
     Route: 064
  4. ZANTAC [Concomitant]
     Route: 064
  5. ZOFRAN [Concomitant]
     Route: 064
  6. PRENATAL VITAMINS [Concomitant]
     Route: 064

REACTIONS (6)
  - RESPIRATORY DISTRESS [None]
  - HEART DISEASE CONGENITAL [None]
  - VESICOURETERIC REFLUX [None]
  - FOETAL MACROSOMIA [None]
  - ACROCHORDON [None]
  - DRUG EXPOSURE DURING PREGNANCY [None]
